FAERS Safety Report 4485698-4 (Version None)
Quarter: 2004Q4

REPORT INFORMATION
  Report Type: 
  Country: None (occurrence: None)
  Receive Date: 20041026
  Receipt Date: 20041012
  Transmission Date: 20050328
  Serious: Yes (Hospitalization)
  Sender: FDA-Public Use
  Company Number: FRPFM-E-20040114

PATIENT
  Age: 81 Year
  Sex: Female

DRUGS (2)
  1. NAVELBINE [Suspect]
     Indication: BREAST CANCER METASTATIC
     Route: 042
     Dates: start: 20040727
  2. TAXOTERE [Suspect]
     Indication: BREAST CANCER METASTATIC
     Dosage: 92MG PER DAY
     Route: 042
     Dates: start: 20040727

REACTIONS (8)
  - AGRANULOCYTOSIS [None]
  - ANAEMIA [None]
  - ANAPHYLACTIC REACTION [None]
  - ANGIONEUROTIC OEDEMA [None]
  - BLOOD CREATININE DECREASED [None]
  - HEART RATE INCREASED [None]
  - NEUTROPENIA [None]
  - PYREXIA [None]
